FAERS Safety Report 21071621 (Version 1)
Quarter: 2022Q3

REPORT INFORMATION
  Report Type: Spontaneous
  Country: US (occurrence: None)
  Receive Date: 20220712
  Receipt Date: 20220712
  Transmission Date: 20221026
  Serious: Yes (Other)
  Sender: FDA-Public Use
  Company Number: None

PATIENT
  Age: 31 Year
  Sex: Male

DRUGS (1)
  1. DEXTROAMPHETAMINE [Suspect]
     Active Substance: DEXTROAMPHETAMINE

REACTIONS (9)
  - Drug ineffective [None]
  - Palpitations [None]
  - Hot flush [None]
  - Anxiety [None]
  - Headache [None]
  - Dizziness [None]
  - Lethargy [None]
  - Feeling abnormal [None]
  - Product formulation issue [None]
